FAERS Safety Report 19303776 (Version 1)
Quarter: 2021Q2

REPORT INFORMATION
  Report Type: Spontaneous
  Country: GB (occurrence: GB)
  Receive Date: 20210525
  Receipt Date: 20210525
  Transmission Date: 20210717
  Serious: Yes (Hospitalization, Other)
  Sender: FDA-Public Use
  Company Number: GB-PERRIGO-21GB006496

PATIENT

DRUGS (3)
  1. PIRITON [Suspect]
     Active Substance: CHLORPHENIRAMINE MALEATE
     Indication: MILIARIA
     Dosage: 10ML 4 TIMES A DAY
     Route: 048
     Dates: start: 20210501, end: 20210504
  2. CETIRIZINE DIHYDROCHLORIDE [Suspect]
     Active Substance: CETIRIZINE HYDROCHLORIDE
     Indication: MILIARIA
     Dosage: 1 TABLET IN THE MORNING
     Route: 048
     Dates: start: 20210501, end: 20210501
  3. LORATADINE. [Suspect]
     Active Substance: LORATADINE
     Indication: MILIARIA
     Dosage: 1 TABLET
     Route: 048
     Dates: start: 20210506, end: 20210506

REACTIONS (5)
  - Seizure [Recovering/Resolving]
  - Dry mouth [Recovered/Resolved]
  - Swelling face [Recovered/Resolved with Sequelae]
  - Fatigue [Recovering/Resolving]
  - Heart rate irregular [Recovering/Resolving]

NARRATIVE: CASE EVENT DATE: 20210505
